FAERS Safety Report 16196190 (Version 3)
Quarter: 2022Q1

REPORT INFORMATION
  Report Type: Spontaneous
  Country: US (occurrence: US)
  Receive Date: 20190415
  Receipt Date: 20220130
  Transmission Date: 20220423
  Serious: Yes (Hospitalization, Other)
  Sender: FDA-Public Use
  Company Number: US-JAZZ-2019-US-005164

PATIENT

DRUGS (69)
  1. DEFITELIO [Suspect]
     Active Substance: DEFIBROTIDE SODIUM
     Indication: Venoocclusive disease
     Dosage: 6.25 MG/KG, Q6H, TOTAL 75 MG
     Route: 042
     Dates: start: 20140912, end: 20140913
  2. ACETAMINOPHEN [Concomitant]
     Active Substance: ACETAMINOPHEN
     Indication: Premedication
     Dosage: UNK
     Dates: start: 20140830, end: 20140830
  3. ACETAMINOPHEN [Concomitant]
     Active Substance: ACETAMINOPHEN
     Dosage: 132 MG
     Dates: start: 20140911, end: 20140911
  4. ACYCLOVIR [Concomitant]
     Active Substance: ACYCLOVIR
     Indication: Prophylaxis
     Dosage: UNK
     Dates: start: 20140826, end: 20140908
  5. ALBUMIN HUMAN [Concomitant]
     Active Substance: ALBUMIN HUMAN
     Indication: Hypoalbuminaemia
     Dosage: UNK
     Dates: start: 20140914, end: 20140914
  6. AMINOPHYLLINE [Concomitant]
     Active Substance: AMINOPHYLLINE
     Indication: Polyuria
     Dosage: UNK
     Dates: start: 20140911, end: 20140911
  7. BUSULFAN [Concomitant]
     Active Substance: BUSULFAN
     Indication: Bone marrow conditioning regimen
     Dosage: UNK
     Dates: start: 20140818, end: 20140821
  8. CEFEPIME [Concomitant]
     Active Substance: CEFEPIME HYDROCHLORIDE
     Indication: Antibiotic therapy
     Dosage: UNK
     Dates: start: 20140912, end: 20140921
  9. CHLOROTHIAZIDE [Concomitant]
     Active Substance: CHLOROTHIAZIDE
     Indication: Polyuria
     Dosage: UNK
     Dates: start: 20140910, end: 20140913
  10. CHLOROTHIAZIDE [Concomitant]
     Active Substance: CHLOROTHIAZIDE
     Dosage: UNK
     Dates: start: 20140914, end: 20140919
  11. CIPROFLOXACIN [Concomitant]
     Active Substance: CIPROFLOXACIN
     Indication: Gastrointestinal disorder
     Dosage: UNK
     Dates: start: 20140820, end: 20140827
  12. CIPROFLOXACIN [Concomitant]
     Active Substance: CIPROFLOXACIN
     Dosage: UNK
     Dates: start: 20140827, end: 20140831
  13. CYCLOPHOSPHAMIDE [Concomitant]
     Active Substance: CYCLOPHOSPHAMIDE
     Indication: Bone marrow conditioning regimen
     Dosage: UNK
     Dates: start: 20140822, end: 20140823
  14. DIPHENHYDRAMINE HYDROCHLORIDE [Concomitant]
     Active Substance: DIPHENHYDRAMINE HYDROCHLORIDE
     Indication: Premedication
     Dosage: UNK
     Dates: start: 20140830, end: 20140830
  15. FENTANYL [Concomitant]
     Active Substance: FENTANYL
     Indication: Chest tube insertion
     Dosage: UNK
     Dates: start: 20140811, end: 20140811
  16. FILGRASTIM [Concomitant]
     Active Substance: FILGRASTIM
     Indication: Growth retardation
     Dosage: UNK
     Dates: start: 20140831, end: 20140909
  17. FLUCONAZOLE [Concomitant]
     Active Substance: FLUCONAZOLE
     Indication: Prophylaxis
     Dosage: UNK
     Dates: start: 20140818, end: 20140908
  18. FUROSEMIDE [Concomitant]
     Active Substance: FUROSEMIDE
     Indication: Polyuria
     Dosage: UNK
     Dates: start: 20140825, end: 20140825
  19. FUROSEMIDE [Concomitant]
     Active Substance: FUROSEMIDE
     Dosage: 12 MG
     Dates: start: 20140906, end: 20140906
  20. FUROSEMIDE [Concomitant]
     Active Substance: FUROSEMIDE
     Dosage: 12 MG
     Dates: start: 20140907, end: 20140907
  21. FUROSEMIDE [Concomitant]
     Active Substance: FUROSEMIDE
     Dosage: 6 MG
     Dates: start: 20140907, end: 20140907
  22. FUROSEMIDE [Concomitant]
     Active Substance: FUROSEMIDE
     Dosage: 5 MG
     Dates: start: 20140908, end: 20140908
  23. FUROSEMIDE [Concomitant]
     Active Substance: FUROSEMIDE
     Dosage: 5 MG
     Dates: start: 20140909, end: 20140909
  24. FUROSEMIDE [Concomitant]
     Active Substance: FUROSEMIDE
     Dosage: 10 MG
     Dates: start: 20140909, end: 20140909
  25. FUROSEMIDE [Concomitant]
     Active Substance: FUROSEMIDE
     Dosage: 8 MG
     Dates: start: 20140910, end: 20140910
  26. FUROSEMIDE [Concomitant]
     Active Substance: FUROSEMIDE
     Dosage: 7 MG
     Dates: start: 20140910, end: 20140910
  27. FUROSEMIDE [Concomitant]
     Active Substance: FUROSEMIDE
     Dosage: 12 MG
     Dates: start: 20140910, end: 20140910
  28. FUROSEMIDE [Concomitant]
     Active Substance: FUROSEMIDE
     Dosage: 13 MG
     Dates: start: 20140910, end: 20140913
  29. FUROSEMIDE [Concomitant]
     Active Substance: FUROSEMIDE
     Dosage: 13 MG
     Dates: start: 20140913, end: 20140919
  30. DEXTROSE [Concomitant]
     Active Substance: DEXTROSE
     Indication: Polyuria
     Dosage: UNK
     Dates: start: 20140911, end: 20140911
  31. HEPARIN [Concomitant]
     Active Substance: HEPARIN SODIUM
     Indication: Catheter management
     Dosage: UNK
     Dates: start: 20140817, end: 20140821
  32. KETAMINE [Concomitant]
     Active Substance: KETAMINE
     Indication: Chest tube insertion
     Dosage: UNK
     Dates: start: 20140911, end: 20140911
  33. LACTULOSE [Concomitant]
     Active Substance: LACTULOSE
     Indication: Hepatic encephalopathy
     Dosage: UNK
     Dates: start: 20140913, end: 20140916
  34. LEVETIRACETAM [Concomitant]
     Active Substance: LEVETIRACETAM
     Indication: Seizure prophylaxis
     Dosage: UNK
     Dates: start: 20140817, end: 20140822
  35. MAGNESIUM SULFATE [Concomitant]
     Active Substance: MAGNESIUM SULFATE
     Indication: Mineral supplementation
     Dosage: UNK
     Dates: start: 20140812, end: 20140812
  36. MAGNESIUM SULFATE [Concomitant]
     Active Substance: MAGNESIUM SULFATE
     Dosage: 630 MG
     Dates: start: 20140914, end: 20140914
  37. MAGNESIUM SULFATE [Concomitant]
     Active Substance: MAGNESIUM SULFATE
     Dosage: 650 MG
     Dates: start: 20140914, end: 20140914
  38. MANNITOL [Concomitant]
     Active Substance: MANNITOL
     Indication: Blood osmolarity
     Dosage: UNK
     Dates: start: 20140913, end: 20140913
  39. MESNA [Concomitant]
     Active Substance: MESNA
     Indication: Prophylactic chemotherapy
     Dosage: UNK
     Dates: start: 20140822, end: 20140824
  40. METHYLPREDNISOLONE [Concomitant]
     Active Substance: METHYLPREDNISOLONE
     Indication: Venoocclusive disease
     Dosage: UNK
     Dates: start: 20140911, end: 20140919
  41. METOCLOPRAMIDE [Concomitant]
     Active Substance: METOCLOPRAMIDE
     Indication: Nausea
     Dosage: UNK
     Dates: start: 20140824, end: 20140827
  42. METOCLOPRAMIDE [Concomitant]
     Active Substance: METOCLOPRAMIDE
     Indication: Vomiting
  43. MIDAZOLAM [Concomitant]
     Active Substance: MIDAZOLAM
     Indication: Sedation
     Dosage: UNK
     Dates: start: 20140913, end: 20140913
  44. MORPHINE [Concomitant]
     Active Substance: MORPHINE
     Indication: Pain
     Dosage: 1.2 MG
     Dates: start: 20140913, end: 20140913
  45. MORPHINE [Concomitant]
     Active Substance: MORPHINE
     Dosage: 1.3 MG
     Dates: start: 20140913, end: 20140913
  46. MYCOPHENOLIC ACID [Concomitant]
     Active Substance: MYCOPHENOLIC ACID
     Indication: Prophylaxis against graft versus host disease
     Dosage: UNK
     Dates: start: 20140912, end: 20140912
  47. RIFAXIMIN [Concomitant]
     Active Substance: RIFAXIMIN
     Indication: Hepatic encephalopathy
     Dosage: UNK
     Dates: start: 20140913, end: 20140921
  48. ONDANSETRON [Concomitant]
     Active Substance: ONDANSETRON
     Indication: Antiemetic supportive care
     Dosage: UNK
     Dates: start: 20140817, end: 20140909
  49. PHYTONADIONE [Concomitant]
     Active Substance: PHYTONADIONE
     Indication: Coagulopathy
     Dosage: UNK
     Dates: start: 20140910, end: 20140916
  50. POLYETHYLENE GLYCOL 3350 [Concomitant]
     Active Substance: POLYETHYLENE GLYCOL 3350
     Indication: Laxative supportive care
     Dosage: UNK
     Dates: start: 20140818, end: 20140820
  51. POTASSIUM CHLORIDE [Concomitant]
     Active Substance: POTASSIUM CHLORIDE
     Indication: Hypokalaemia
     Dosage: 7 MEQ
     Dates: start: 20140913, end: 20140913
  52. POTASSIUM CHLORIDE [Concomitant]
     Active Substance: POTASSIUM CHLORIDE
     Dosage: 7 MEQ
     Dates: start: 20140913, end: 20140913
  53. POTASSIUM CHLORIDE [Concomitant]
     Active Substance: POTASSIUM CHLORIDE
     Dosage: 15 MEQ
     Dates: start: 20140914, end: 20140914
  54. POTASSIUM PHOSPHATE, DIBASIC [Concomitant]
     Active Substance: POTASSIUM PHOSPHATE, DIBASIC
     Indication: Hypokalaemia
     Dosage: UNK
     Dates: start: 20140912, end: 20140912
  55. POTASSIUM PHOSPHATE, DIBASIC [Concomitant]
     Active Substance: POTASSIUM PHOSPHATE, DIBASIC
     Indication: Hypophosphataemia
  56. PANTOPRAZOLE [Concomitant]
     Active Substance: PANTOPRAZOLE
     Indication: Prophylaxis
     Dosage: UNK
     Dates: start: 20140909, end: 20141003
  57. RANITIDINE [Concomitant]
     Active Substance: RANITIDINE
     Indication: Prophylaxis
     Dosage: UNK
     Dates: start: 20140824, end: 20140826
  58. RASBURICASE [Concomitant]
     Active Substance: RASBURICASE
     Indication: Hyperuricaemia
     Dosage: UNK
     Dates: start: 20140911, end: 20140911
  59. ROCURONIUM [Concomitant]
     Active Substance: ROCURONIUM BROMIDE
     Indication: Endotracheal intubation
     Dosage: UNK
     Dates: start: 20140913, end: 20140913
  60. SODIUM PHOSPHATE [Concomitant]
     Active Substance: SODIUM PHOSPHATE
     Indication: Hypophosphataemia
     Dosage: UNK
     Dates: start: 20140912, end: 20140912
  61. SPIRONOLACTONE [Concomitant]
     Active Substance: SPIRONOLACTONE
     Indication: Polyuria
     Dosage: 6.5 MG
     Dates: start: 20140912, end: 20140912
  62. SPIRONOLACTONE [Concomitant]
     Active Substance: SPIRONOLACTONE
     Dosage: 10 MG
     Dates: start: 20140923, end: 20140924
  63. TACROLIMUS [Concomitant]
     Active Substance: TACROLIMUS
     Indication: Prophylaxis against graft versus host disease
     Dosage: UNK
     Dates: start: 20140822, end: 20140824
  64. URSODIOL [Concomitant]
     Active Substance: URSODIOL
     Indication: Prophylaxis
     Dosage: UNK
     Dates: start: 20140917, end: 20140918
  65. VANCOMYCIN [Concomitant]
     Active Substance: VANCOMYCIN
     Indication: Antibiotic therapy
     Dosage: UNK
     Dates: start: 20140912, end: 20140913
  66. DOPAMINE [Concomitant]
     Active Substance: DOPAMINE HYDROCHLORIDE
     Indication: Polyuria
     Dosage: UNK
     Dates: start: 20140914, end: 20140915
  67. FENOLDOPAM [Concomitant]
     Active Substance: FENOLDOPAM
     Indication: Polyuria
     Dosage: UNK
     Dates: start: 20140911, end: 20140918
  68. INSULIN NOS [Concomitant]
     Active Substance: INSULIN NOS
     Indication: Hyperglycaemia
     Dosage: UNK
     Dates: start: 20140913, end: 20140919
  69. MILRINONE [Concomitant]
     Active Substance: MILRINONE
     Indication: Haemodynamic instability
     Dosage: UNK
     Dates: start: 20140914, end: 20140919

REACTIONS (1)
  - Pulmonary oedema [Recovered/Resolved]

NARRATIVE: CASE EVENT DATE: 20140913
